FAERS Safety Report 8208837-8 (Version None)
Quarter: 2012Q1

REPORT INFORMATION
  Report Type: 
  Country: None (occurrence: None)
  Receive Date: 20120314
  Receipt Date: 20120308
  Transmission Date: 20120608
  Serious: Yes (Other)
  Sender: FDA-Public Use
  Company Number: US-PFIZER INC-2012062333

PATIENT
  Sex: Female

DRUGS (3)
  1. NARDIL [Suspect]
     Dosage: UNK
  2. CHANTIX [Suspect]
  3. PREDNISONE [Suspect]

REACTIONS (1)
  - CATARACT [None]
